FAERS Safety Report 9920239 (Version 2)
Quarter: 2014Q1

REPORT INFORMATION
  Report Type: Spontaneous
  Country: FR (occurrence: FR)
  Receive Date: 20140224
  Receipt Date: 20140321
  Transmission Date: 20141002
  Serious: Yes (Other)
  Sender: FDA-Public Use
  Company Number: PHHY2014FR021500

PATIENT
  Age: 47 Year
  Sex: Female

DRUGS (4)
  1. METHOTREXATE [Suspect]
     Indication: ACUTE LYMPHOCYTIC LEUKAEMIA
     Dosage: 4.8 G, UNK
     Route: 041
  2. PIPERACILLIN+TAZOBACTAM [Interacting]
  3. FOLINIC ACID [Concomitant]
     Dosage: 50 MG, QID
  4. FOLINIC ACID [Concomitant]
     Dosage: 200 MG, QID

REACTIONS (5)
  - Mucosal inflammation [Recovering/Resolving]
  - Toxicity to various agents [Recovering/Resolving]
  - Drug interaction [Unknown]
  - Headache [Recovering/Resolving]
  - Medication error [Unknown]
